FAERS Safety Report 5467035-1 (Version None)
Quarter: 2007Q3

REPORT INFORMATION
  Report Type: 
  Country: None (occurrence: None)
  Receive Date: 20070925
  Receipt Date: 20070925
  Transmission Date: 20080115
  Serious: Yes (Hospitalization, Congenital Anomaly)
  Sender: FDA-Public Use
  Company Number: B0480925A

PATIENT
  Sex: Female

DRUGS (1)
  1. ZOFRAN [Suspect]
     Indication: DRUG USE FOR UNKNOWN INDICATION
     Dates: start: 20060822, end: 20070413

REACTIONS (2)
  - CONVULSION [None]
  - DRUG EXPOSURE DURING PREGNANCY [None]
